FAERS Safety Report 24217881 (Version 1)
Quarter: 2024Q3

REPORT INFORMATION
  Report Type: Spontaneous
  Country: US (occurrence: US)
  Receive Date: 20240816
  Receipt Date: 20240816
  Transmission Date: 20241016
  Serious: No
  Sender: FRESENIUS KABI
  Company Number: US-FreseniusKabi-FK202412402

PATIENT
  Sex: Female

DRUGS (1)
  1. IDACIO [Suspect]
     Active Substance: ADALIMUMAB-AACF
     Indication: Colitis ulcerative
     Dosage: ROUTE, DOSE, FREQUENCY: ASKED BUT UNKNOWN?FORM OF ADMINISTRATION: INJECTION

REACTIONS (2)
  - Colitis ulcerative [Unknown]
  - Therapeutic product effect decreased [Unknown]
